FAERS Safety Report 24149350 (Version 1)
Quarter: 2024Q3

REPORT INFORMATION
  Report Type: Spontaneous
  Country: US (occurrence: US)
  Receive Date: 20240730
  Receipt Date: 20240730
  Transmission Date: 20241016
  Serious: Yes (Hospitalization, Other)
  Sender: Steriscience PTE
  Company Number: US-STERISCIENCE B.V.-2024-ST-001088

PATIENT
  Age: 45 Day
  Sex: Male
  Weight: 2.115 kg

DRUGS (13)
  1. VANCOMYCIN [Suspect]
     Active Substance: VANCOMYCIN
     Indication: Congenital tuberculosis
     Dosage: EVERY 8 H
     Route: 065
  2. VANCOMYCIN [Suspect]
     Active Substance: VANCOMYCIN
     Dosage: UNK
     Route: 065
  3. MEROPENEM [Suspect]
     Active Substance: MEROPENEM
     Indication: Tuberculosis gastrointestinal
     Dosage: UNK
     Route: 065
  4. ONDANSETRON [Suspect]
     Active Substance: ONDANSETRON
     Indication: Vomiting
     Dosage: UNK
     Route: 065
  5. RIFAMPIN [Suspect]
     Active Substance: RIFAMPIN
     Indication: Congenital tuberculosis
     Dosage: 15 MILLIGRAM/KILOGRAM, QD
     Route: 048
  6. RIFAMPIN [Suspect]
     Active Substance: RIFAMPIN
  7. ISONIAZID [Suspect]
     Active Substance: ISONIAZID
     Indication: Congenital tuberculosis
     Dosage: 10 MILLIGRAM/KILOGRAM, QD
     Route: 048
  8. ISONIAZID [Suspect]
     Active Substance: ISONIAZID
     Dosage: 15 MILLIGRAM/KILOGRAM, QD
  9. PYRIDOXINE [Suspect]
     Active Substance: PYRIDOXINE
     Indication: Congenital tuberculosis
     Dosage: UNK
     Route: 065
  10. PYRAZINAMIDE [Suspect]
     Active Substance: PYRAZINAMIDE
     Indication: Congenital tuberculosis
     Dosage: 35 MILLIGRAM/KILOGRAM, QD
     Route: 065
  11. ETHAMBUTOL [Suspect]
     Active Substance: ETHAMBUTOL HYDROCHLORIDE
     Indication: Congenital tuberculosis
     Route: 065
  12. AMIKACIN [Suspect]
     Active Substance: AMIKACIN
     Indication: Congenital tuberculosis
     Dosage: UNK
     Route: 065
  13. PIPERACILLIN SODIUM\TAZOBACTAM SODIUM [Concomitant]
     Active Substance: PIPERACILLIN SODIUM\TAZOBACTAM SODIUM
     Indication: Sepsis neonatal
     Dosage: UNK
     Route: 065

REACTIONS (3)
  - Paradoxical drug reaction [Recovered/Resolved]
  - Drug ineffective [Unknown]
  - Off label use [Unknown]
